FAERS Safety Report 19987143 (Version 2)
Quarter: 2021Q4

REPORT INFORMATION
  Report Type: Spontaneous
  Country: GR (occurrence: GR)
  Receive Date: 20211023
  Receipt Date: 20211228
  Transmission Date: 20220304
  Serious: Yes (Other)
  Sender: FDA-Public Use
  Company Number: GR-NOVARTISPH-NVSC2020GR331068

PATIENT
  Age: 50 Year
  Sex: Male

DRUGS (1)
  1. COSENTYX [Suspect]
     Active Substance: SECUKINUMAB
     Indication: Psoriasis
     Dosage: UNK, QW(LOADING DOSE EVERY 1 WEEK FOR 4 WEEKS)
     Route: 065

REACTIONS (5)
  - Antiphospholipid syndrome [Unknown]
  - Syncope [Unknown]
  - Antinuclear antibody increased [Unknown]
  - Oral candidiasis [Recovering/Resolving]
  - Inappropriate schedule of product administration [Unknown]

NARRATIVE: CASE EVENT DATE: 20201201
